FAERS Safety Report 5906995-9 (Version None)
Quarter: 2008Q4

REPORT INFORMATION
  Report Type: 
  Country: None (occurrence: None)
  Receive Date: 20081002
  Receipt Date: 20081002
  Transmission Date: 20090506
  Serious: Yes (Other)
  Sender: FDA-Public Use
  Company Number: None

PATIENT
  Sex: Male
  Weight: 27.6694 kg

DRUGS (2)
  1. SINGULAIR [Suspect]
     Indication: ASTHMA
     Dosage: 1X DAILY PO  (DURATION: APPROX 4 YEARS)
     Route: 048
  2. SINGULAIR [Suspect]
     Indication: MULTIPLE ALLERGIES
     Dosage: 1X DAILY PO  (DURATION: APPROX 4 YEARS)
     Route: 048

REACTIONS (16)
  - ABNORMAL BEHAVIOUR [None]
  - AFFECTIVE DISORDER [None]
  - AGGRESSION [None]
  - ANGER [None]
  - ASTHMA [None]
  - CEREBRAL DISORDER [None]
  - CONSTIPATION [None]
  - ILL-DEFINED DISORDER [None]
  - INSOMNIA [None]
  - MENTAL DISORDER [None]
  - NIGHTMARE [None]
  - PERSONALITY CHANGE [None]
  - PRURITUS [None]
  - SELF-INJURIOUS IDEATION [None]
  - URTICARIA [None]
  - VIOLENCE-RELATED SYMPTOM [None]
